FAERS Safety Report 7190464-5 (Version None)
Quarter: 2010Q4

REPORT INFORMATION
  Report Type: 
  Country: None (occurrence: None)
  Receive Date: 20101223
  Receipt Date: 20101214
  Transmission Date: 20110411
  Serious: Yes (Other)
  Sender: FDA-Public Use
  Company Number: IT-JNJFOC-20101205966

PATIENT
  Sex: Female
  Weight: 1.26 kg

DRUGS (5)
  1. INFLIXIMAB, RECOMBINANT [Suspect]
     Indication: DRUG EXPOSURE DURING PREGNANCY
     Route: 064
  2. INFLIXIMAB, RECOMBINANT [Suspect]
     Dosage: RECEIVED INDUCTION DOSES AT WEEKS 0, 2 AND 6
     Route: 064
  3. METHOTREXATE [Suspect]
     Indication: DRUG EXPOSURE DURING PREGNANCY
     Route: 064
  4. PREDNISONE [Concomitant]
     Indication: DRUG EXPOSURE DURING PREGNANCY
     Route: 064
  5. CALCIUM CHANNEL BLOCKER [Concomitant]
     Indication: DRUG EXPOSURE DURING PREGNANCY
     Route: 064

REACTIONS (1)
  - PREMATURE BABY [None]
